FAERS Safety Report 9054340 (Version 1)
Quarter: 2013Q1

REPORT INFORMATION
  Report Type: Spontaneous
  Country: US (occurrence: US)
  Receive Date: 20130208
  Receipt Date: 20130208
  Transmission Date: 20140127
  Serious: Yes (Hospitalization)
  Sender: FDA-Public Use
  Company Number: US-GILEAD-2013-0068981

PATIENT
  Sex: Female

DRUGS (3)
  1. LETAIRIS [Suspect]
     Indication: PULMONARY ARTERIAL HYPERTENSION
     Dates: start: 20120608
  2. LETAIRIS [Suspect]
     Dates: start: 20120607
  3. REVATIO [Concomitant]

REACTIONS (2)
  - Lung disorder [Unknown]
  - Unevaluable event [Unknown]
